FAERS Safety Report 19806723 (Version 1)
Quarter: 2021Q3

REPORT INFORMATION
  Report Type: Spontaneous
  Country: US (occurrence: US)
  Receive Date: 20210908
  Receipt Date: 20210908
  Transmission Date: 20211014
  Serious: Yes (Other)
  Sender: FDA-Public Use
  Company Number: US-AMERICAN REGENT INC-2021001503

PATIENT
  Age: 80 Year
  Sex: Female

DRUGS (2)
  1. INJECTAFER [Suspect]
     Active Substance: FERRIC CARBOXYMALTOSE
     Indication: PRODUCT USED FOR UNKNOWN INDICATION
     Dosage: UNK, SINGLE (FIRST DOSE)
     Route: 042
  2. INJECTAFER [Suspect]
     Active Substance: FERRIC CARBOXYMALTOSE
     Dosage: UNK, SINGLE (SECOND DOSE)
     Route: 042

REACTIONS (4)
  - Dyspnoea [Recovered/Resolved]
  - Flushing [Recovered/Resolved]
  - Chest discomfort [Recovered/Resolved]
  - Blood pressure systolic increased [Recovered/Resolved]
